FAERS Safety Report 5779832-3 (Version None)
Quarter: 2008Q2

REPORT INFORMATION
  Report Type: 
  Country: None (occurrence: None)
  Receive Date: 20080620
  Receipt Date: 20080611
  Transmission Date: 20081010
  Serious: Yes (Other)
  Sender: FDA-Public Use
  Company Number: PHHY2008JP10603

PATIENT
  Age: 12 Year
  Sex: Male

DRUGS (1)
  1. CYCLOSPORINE [Suspect]

REACTIONS (1)
  - CEREBRAL VENOUS THROMBOSIS [None]
